FAERS Safety Report 21410458 (Version 1)
Quarter: 2022Q4

REPORT INFORMATION
  Report Type: Spontaneous
  Country: US (occurrence: None)
  Receive Date: 20221003
  Receipt Date: 20221003
  Transmission Date: 20230112
  Serious: Yes (Hospitalization)
  Sender: FDA-Public Use
  Company Number: None

PATIENT
  Age: 85 Year
  Sex: Male

DRUGS (1)
  1. ABIRATERONE ACETATE [Suspect]
     Active Substance: ABIRATERONE ACETATE
     Indication: Prostate cancer
     Dosage: 1000MG ONCE DAILY ORAL?
     Route: 048
     Dates: start: 20210917

REACTIONS (4)
  - Dyspnoea [None]
  - Oxygen saturation decreased [None]
  - Prostatic specific antigen increased [None]
  - Back pain [None]

NARRATIVE: CASE EVENT DATE: 20220905
